FAERS Safety Report 5413454-9 (Version None)
Quarter: 2007Q3

REPORT INFORMATION
  Report Type: 
  Country: None (occurrence: None)
  Receive Date: 20070810
  Receipt Date: 20070727
  Transmission Date: 20080115
  Serious: Yes (Death)
  Sender: FDA-Public Use
  Company Number: 2007JP003583

PATIENT
  Age: 65 Year
  Sex: Male

DRUGS (2)
  1. FUNGUARD (MICAFUNGIN) INJECTION [Suspect]
     Indication: FUNGAL INFECTION
     Dosage: 100 MG, IV DRIP
     Route: 041
     Dates: start: 20070720, end: 20070720
  2. CIPROXAN (CIPROFLOXACIN HYDROCHLORIDE) INJECTION [Concomitant]

REACTIONS (1)
  - DEATH [None]
